FAERS Safety Report 7657083-5 (Version None)
Quarter: 2011Q3

REPORT INFORMATION
  Report Type: 
  Country: None (occurrence: None)
  Receive Date: 20110804
  Receipt Date: 20100813
  Transmission Date: 20111222
  Serious: No
  Sender: FDA-Public Use
  Company Number: US-GLAXOSMITHKLINE-A0875756A

PATIENT
  Age: 48 Year
  Sex: Male

DRUGS (6)
  1. VITAMIN E [Concomitant]
  2. ADVAIR DISKUS 100/50 [Suspect]
     Indication: ASTHMA
     Dosage: 1PUFF TWICE PER DAY
     Route: 055
     Dates: start: 20100701
  3. ZITHROMAX [Concomitant]
  4. VENTOLIN HFA [Suspect]
     Indication: ASTHMA
     Dosage: 2PUFF FOUR TIMES PER DAY
     Route: 055
     Dates: start: 20100201
  5. MULTI-VITAMIN [Concomitant]
  6. HYZAAR [Concomitant]

REACTIONS (5)
  - PULMONARY FUNCTION TEST DECREASED [None]
  - WEIGHT DECREASED [None]
  - DRUG INEFFECTIVE [None]
  - COUGH [None]
  - LARYNGITIS [None]
